FAERS Safety Report 6326086-5 (Version None)
Quarter: 2009Q3

REPORT INFORMATION
  Report Type: 
  Country: None (occurrence: None)
  Receive Date: 20090820
  Receipt Date: 20090810
  Transmission Date: 20100115
  Serious: Yes (Life-Threatening)
  Sender: FDA-Public Use
  Company Number: GXKR2009CZ08500

PATIENT
  Age: 33 Year
  Sex: Female
  Weight: 80 kg

DRUGS (3)
  1. MIDAZOLAM HCL [Suspect]
     Indication: PREMEDICATION
     Dosage: 5 MG, (IN FRACTIONATED DOSES), INTRAVENOUS
     Route: 042
  2. SUFENTANIL CITRATE [Suspect]
     Indication: GENERAL ANAESTHESIA
     Dosage: 25 UG
  3. ROCURONIUM BROMIDE (NGX) (ROCURONIUM BROMIDE) [Suspect]
     Indication: ENDOTRACHEAL INTUBATION
     Dosage: 40 MG

REACTIONS (7)
  - ANAPHYLACTIC REACTION [None]
  - BRONCHOSPASM [None]
  - DRUG INTERACTION [None]
  - HYPOTENSION [None]
  - OXYGEN SATURATION DECREASED [None]
  - RASH [None]
  - SINUS TACHYCARDIA [None]
